FAERS Safety Report 5071984-6 (Version None)
Quarter: 2006Q3

REPORT INFORMATION
  Report Type: 
  Country: None (occurrence: None)
  Receive Date: 20060801
  Receipt Date: 20060717
  Transmission Date: 20061208
  Serious: Yes (Other)
  Sender: FDA-Public Use
  Company Number: C-06-0037

PATIENT
  Age: 104 Year
  Sex: Female
  Weight: 49.8957 kg

DRUGS (7)
  1. CHLORAL HYDRATE SYRUP, USP [Suspect]
     Indication: INSOMNIA
     Dosage: 0.5 TSP, ONE TIME, ORAL
     Route: 048
     Dates: start: 20060701
  2. MEGACE [Concomitant]
  3. DIGOXIN [Concomitant]
  4. MIACALCIN [Concomitant]
  5. ELAVIL [Concomitant]
  6. COZAAR [Concomitant]
  7. ATENOLOL [Concomitant]

REACTIONS (1)
  - DERMATITIS [None]
